FAERS Safety Report 16087881 (Version 1)
Quarter: 2019Q1

REPORT INFORMATION
  Report Type: Report from Study
  Country: IT (occurrence: IT)
  Receive Date: 20190319
  Receipt Date: 20190319
  Transmission Date: 20190418
  Serious: Yes (Hospitalization)
  Sender: FDA-Public Use
  Company Number: IT-ACCORD-113977

PATIENT
  Age: 15 Year
  Sex: Female

DRUGS (3)
  1. ARIPIPRAZOLE. [Concomitant]
     Active Substance: ARIPIPRAZOLE
  2. SERTRALINE [Suspect]
     Active Substance: SERTRALINE HYDROCHLORIDE
     Route: 048
  3. AKINETON [Concomitant]
     Active Substance: BIPERIDEN HYDROCHLORIDE

REACTIONS (3)
  - Drug abuse [Unknown]
  - Electrocardiogram PQ interval prolonged [Recovering/Resolving]
  - Suicide attempt [Unknown]

NARRATIVE: CASE EVENT DATE: 20181017
